FAERS Safety Report 23593239 (Version 1)
Quarter: 2024Q1

REPORT INFORMATION
  Report Type: Spontaneous
  Country: JP (occurrence: JP)
  Receive Date: 20240304
  Receipt Date: 20240304
  Transmission Date: 20240410
  Serious: Yes (Other)
  Sender: FDA-Public Use
  Company Number: JP-PFIZER INC-202400053467

PATIENT
  Age: 49 Year
  Sex: Female

DRUGS (2)
  1. PAXLOVID [Suspect]
     Active Substance: NIRMATRELVIR\RITONAVIR
     Indication: COVID-19 treatment
     Dosage: UNK
     Route: 048
  2. JARDIANCE [Concomitant]
     Active Substance: EMPAGLIFLOZIN
     Indication: Diabetes mellitus
     Dosage: UNK
     Route: 048

REACTIONS (9)
  - Oculomucocutaneous syndrome [Unknown]
  - Oral herpes [Unknown]
  - Erythema [Unknown]
  - Pain in extremity [Unknown]
  - Rash [Unknown]
  - Oral mucosal erythema [Unknown]
  - Oral pain [Unknown]
  - Glossodynia [Unknown]
  - Drug hypersensitivity [Unknown]
